FAERS Safety Report 20910848 (Version 1)
Quarter: 2022Q2

REPORT INFORMATION
  Report Type: Spontaneous
  Country: US (occurrence: US)
  Receive Date: 20220603
  Receipt Date: 20220603
  Transmission Date: 20220721
  Serious: Yes (Hospitalization)
  Sender: FDA-Public Use
  Company Number: ENDG22-01505

PATIENT
  Sex: Female
  Weight: 54.422 kg

DRUGS (4)
  1. PROPRANOLOL HYDROCHLORIDE [Suspect]
     Active Substance: PROPRANOLOL HYDROCHLORIDE
     Indication: Blood pressure increased
     Dosage: 2 DF, DAILY (ONCE IN THE MORNING AND ONCE IN THE EVENING)
     Route: 048
  2. LETROZOLE [Suspect]
     Active Substance: LETROZOLE
     Indication: Breast cancer
     Dosage: 1 DF, DAILY
     Route: 048
     Dates: start: 2016
  3. Ergocal vitamin D2 [Concomitant]
     Indication: Vitamin D decreased
     Dosage: 1 DF, MONTHLY (50,000 UNITS, ONE GEL TABLET)
     Route: 048
  4. VITAMIN B12 [Concomitant]
     Active Substance: CYANOCOBALAMIN
     Indication: Electrolyte depletion
     Dosage: 1 DF, WEEKLY (MOUTH SLOW DISSOLVE)
     Route: 048

REACTIONS (14)
  - Blood magnesium decreased [Recovered/Resolved]
  - Condition aggravated [Recovered/Resolved]
  - Respiratory disorder [Unknown]
  - Skin disorder [Unknown]
  - Eye disorder [Not Recovered/Not Resolved]
  - Nail disorder [Not Recovered/Not Resolved]
  - Headache [Unknown]
  - Dizziness [Unknown]
  - Nausea [Not Recovered/Not Resolved]
  - Diarrhoea [Not Recovered/Not Resolved]
  - Vomiting [Not Recovered/Not Resolved]
  - Alopecia [Not Recovered/Not Resolved]
  - Fatigue [Unknown]
  - Product identification number issue [Not Recovered/Not Resolved]
